FAERS Safety Report 5982117-3 (Version None)
Quarter: 2008Q4

REPORT INFORMATION
  Report Type: 
  Country: None (occurrence: None)
  Receive Date: 20081202
  Receipt Date: 20081127
  Transmission Date: 20090506
  Serious: Yes (Life-Threatening, Hospitalization, Other)
  Sender: FDA-Public Use
  Company Number: 2008SP011526

PATIENT
  Age: 59 Year
  Sex: Male
  Weight: 50 kg

DRUGS (7)
  1. TEMODAL [Suspect]
     Indication: ANAPLASTIC ASTROCYTOMA
     Dosage: 75 MG;QD;PO 150 MG;QD;PO
     Route: 048
     Dates: start: 20071029, end: 20071205
  2. TEMODAL [Suspect]
     Indication: ANAPLASTIC ASTROCYTOMA
     Dosage: 75 MG;QD;PO 150 MG;QD;PO
     Route: 048
     Dates: start: 20080218, end: 20080222
  3. TEMODAL [Suspect]
     Indication: ANAPLASTIC ASTROCYTOMA
     Dosage: 75 MG;QD;PO 150 MG;QD;PO
     Route: 048
     Dates: start: 20080324, end: 20080328
  4. TEMODAL [Suspect]
     Indication: ANAPLASTIC ASTROCYTOMA
     Dosage: 75 MG;QD;PO 150 MG;QD;PO
     Route: 048
     Dates: start: 20080421, end: 20080425
  5. NASEA [Concomitant]
  6. ALEVIATIN [Concomitant]
  7. MAGNESIUM OXIDE [Concomitant]

REACTIONS (2)
  - INTERSTITIAL LUNG DISEASE [None]
  - RESPIRATORY FAILURE [None]
